FAERS Safety Report 20139792 (Version 1)
Quarter: 2021Q4

REPORT INFORMATION
  Report Type: Spontaneous
  Country: US (occurrence: US)
  Receive Date: 20211202
  Receipt Date: 20211202
  Transmission Date: 20220303
  Serious: No
  Sender: FDA-Public Use
  Company Number: US-CURIUM-2021000764

PATIENT
  Sex: Male

DRUGS (4)
  1. ULTRA-TECHNEKOW [Suspect]
     Active Substance: TECHNETIUM TC-99M
     Route: 051
     Dates: start: 20211001, end: 20211001
  2. ULTRA-TECHNEKOW [Suspect]
     Active Substance: TECHNETIUM TC-99M
     Route: 051
     Dates: start: 20211001, end: 20211001
  3. MYOVIEW [Concomitant]
     Active Substance: TECHNETIUM TC-99M TETROFOSMIN
     Route: 051
     Dates: start: 20211001, end: 20211001
  4. MYOVIEW [Concomitant]
     Active Substance: TECHNETIUM TC-99M TETROFOSMIN
     Route: 051
     Dates: start: 20211001, end: 20211001

REACTIONS (1)
  - Scan myocardial perfusion abnormal [Recovered/Resolved]

NARRATIVE: CASE EVENT DATE: 20211001
